FAERS Safety Report 10074890 (Version 1)
Quarter: 2014Q2

REPORT INFORMATION
  Report Type: Spontaneous
  Country: US (occurrence: US)
  Receive Date: 20140414
  Receipt Date: 20140414
  Transmission Date: 20141212
  Serious: No
  Sender: FDA-Public Use
  Company Number: US-BIOGENIDEC-2014BI032583

PATIENT
  Age: 50 Year
  Sex: Female
  Weight: 98 kg

DRUGS (25)
  1. AVONEX [Suspect]
     Indication: PRODUCT USED FOR UNKNOWN INDICATION
     Route: 030
  2. AMPYRA [Concomitant]
     Indication: GAIT DISTURBANCE
     Route: 048
     Dates: start: 2009, end: 201212
  3. AMPYRA [Concomitant]
     Indication: GAIT DISTURBANCE
     Dates: start: 201202
  4. COPAXONE [Concomitant]
  5. CINNAMON [Concomitant]
  6. MAGNESIUM [Concomitant]
  7. NEURONTIN [Concomitant]
  8. METHOCARBAMOL [Concomitant]
  9. VITAMIN D [Concomitant]
  10. LIPITOR [Concomitant]
  11. CYMBALTA [Concomitant]
  12. CYMBALTA [Concomitant]
  13. NALTREXONE [Concomitant]
  14. NIACIN [Concomitant]
  15. RUTIN [Concomitant]
  16. VITAMIN E [Concomitant]
  17. ADVIL [Concomitant]
  18. DOCUSATE SODIUM [Concomitant]
  19. CO-ENZYME Q10 [Concomitant]
  20. CRANBERRY [Concomitant]
  21. TYSABRI [Concomitant]
  22. LOVASTATIN [Concomitant]
  23. RITALIN [Concomitant]
  24. ROPINIROLE [Concomitant]
  25. VITAMIN B12 [Concomitant]

REACTIONS (7)
  - Hemiplegia [Unknown]
  - Multiple sclerosis [Not Recovered/Not Resolved]
  - Sleep disorder [Not Recovered/Not Resolved]
  - Therapeutic response changed [Unknown]
  - Pain [Unknown]
  - Musculoskeletal stiffness [Not Recovered/Not Resolved]
  - Injection site pain [Recovered/Resolved]
